FAERS Safety Report 11951255 (Version 1)
Quarter: 2016Q1

REPORT INFORMATION
  Report Type: Report from Study
  Country: PR (occurrence: PR)
  Receive Date: 20160125
  Receipt Date: 20160125
  Transmission Date: 20160526
  Serious: No
  Sender: FDA-Public Use
  Company Number: PR-ABBVIE-15K-131-1446912-00

PATIENT
  Age: 53 Year
  Sex: Female

DRUGS (1)
  1. HUMIRA [Suspect]
     Active Substance: ADALIMUMAB
     Indication: RHEUMATOID ARTHRITIS
     Route: 058
     Dates: start: 20150507, end: 201507

REACTIONS (3)
  - Fungal skin infection [Recovering/Resolving]
  - Blood urine present [Unknown]
  - Rash macular [Recovering/Resolving]

NARRATIVE: CASE EVENT DATE: 201507
